FAERS Safety Report 12333656 (Version 1)
Quarter: 2016Q2

REPORT INFORMATION
  Report Type: Spontaneous
  Country: US (occurrence: US)
  Receive Date: 20160504
  Receipt Date: 20160504
  Transmission Date: 20160815
  Serious: No
  Sender: FDA-Public Use
  Company Number: US-ELI_LILLY_AND_COMPANY-US201604010256

PATIENT
  Age: 43 Year
  Sex: Male

DRUGS (4)
  1. HUMALOG [Suspect]
     Active Substance: INSULIN LISPRO
     Dosage: 8 U, AT LUNCH IN A SLIDING SCALE
     Route: 065
     Dates: start: 201509
  2. HUMALOG [Suspect]
     Active Substance: INSULIN LISPRO
     Dosage: 9 U, EACH EVENING ON A SLIDING SCALE
     Route: 065
     Dates: start: 201509
  3. LANTUS [Concomitant]
     Active Substance: INSULIN GLARGINE
     Indication: PRODUCT USED FOR UNKNOWN INDICATION
     Dosage: UNK, UNKNOWN
     Route: 065
  4. HUMALOG [Suspect]
     Active Substance: INSULIN LISPRO
     Indication: TYPE 1 DIABETES MELLITUS
     Dosage: 9 U, EACH MORNING IN A SLIDING SCALE
     Route: 065
     Dates: start: 201509

REACTIONS (1)
  - Blood glucose increased [Not Recovered/Not Resolved]

NARRATIVE: CASE EVENT DATE: 20160411
